FAERS Safety Report 17630171 (Version 2)
Quarter: 2020Q2

REPORT INFORMATION
  Report Type: Spontaneous
  Country: AU (occurrence: AU)
  Receive Date: 20200406
  Receipt Date: 20200422
  Transmission Date: 20200713
  Serious: Yes (Other)
  Sender: FDA-Public Use
  Company Number: AU-JNJFOC-20200337935

PATIENT
  Age: 86 Year
  Sex: Male

DRUGS (1)
  1. TOPAMAX [Suspect]
     Active Substance: TOPIRAMATE
     Indication: PRODUCT USED FOR UNKNOWN INDICATION
     Route: 048

REACTIONS (5)
  - Amnesia [Unknown]
  - Abnormal behaviour [Recovered/Resolved]
  - Hallucination, visual [Unknown]
  - Aggression [Unknown]
  - Speech disorder [Unknown]
